FAERS Safety Report 25411945 (Version 1)
Quarter: 2025Q2

REPORT INFORMATION
  Report Type: Report from Study
  Country: CN (occurrence: CN)
  Receive Date: 20250609
  Receipt Date: 20250609
  Transmission Date: 20250716
  Serious: Yes (Hospitalization, Other)
  Sender: RANBAXY
  Company Number: CN-SUN PHARMACEUTICAL INDUSTRIES INC-2025R1-510605

PATIENT
  Age: 58 Year
  Sex: Male

DRUGS (2)
  1. PREDNISONE [Suspect]
     Active Substance: PREDNISONE
     Indication: Primary biliary cholangitis
     Route: 065
  2. URSODIOL [Concomitant]
     Active Substance: URSODIOL
     Indication: Primary biliary cholangitis
     Route: 065

REACTIONS (4)
  - Steroid diabetes [Unknown]
  - COVID-19 [Recovering/Resolving]
  - Klebsiella infection [Recovering/Resolving]
  - Aspergillus infection [Recovering/Resolving]
